FAERS Safety Report 24184785 (Version 5)
Quarter: 2025Q1

REPORT INFORMATION
  Report Type: Spontaneous
  Country: CO (occurrence: CO)
  Receive Date: 20240807
  Receipt Date: 20250102
  Transmission Date: 20250409
  Serious: Yes (Other)
  Sender: PFIZER
  Company Number: CO-PFIZER INC-PV202400101633

PATIENT
  Sex: Male

DRUGS (1)
  1. GENOTROPIN [Suspect]
     Active Substance: SOMATROPIN

REACTIONS (5)
  - Device use error [Unknown]
  - Device breakage [Unknown]
  - Device leakage [Unknown]
  - Incorrect dose administered by device [Unknown]
  - Device malfunction [Unknown]
